FAERS Safety Report 8947773 (Version 3)
Quarter: 2012Q4

REPORT INFORMATION
  Report Type: Spontaneous
  Country: EC (occurrence: None)
  Receive Date: 20121127
  Receipt Date: 20121226
  Transmission Date: 20130627
  Serious: Yes (Death, Hospitalization)
  Sender: FDA-Public Use
  Company Number: ENTC2012-0524

PATIENT
  Age: 66 Year
  Sex: Male

DRUGS (4)
  1. STALEVO (LEVODOPA, CARBIDOPA, ENTACAPONE) [Suspect]
     Indication: PARKINSON^S DISEASE
     Dosage: 150/37.5/200 mg 1 tablet daily (1 Dosage form)
     Route: 048
     Dates: start: 20110918, end: 20120614
  2. RAVALGEN [Concomitant]
  3. SOMACINA [Concomitant]
  4. ENSURE [Concomitant]

REACTIONS (1)
  - Pneumonia [None]
